FAERS Safety Report 5843654-5 (Version None)
Quarter: 2008Q3

REPORT INFORMATION
  Report Type: 
  Country: None (occurrence: None)
  Receive Date: 20080812
  Receipt Date: 20080812
  Transmission Date: 20090109
  Serious: Yes (Hospitalization)
  Sender: FDA-Public Use
  Company Number: None

PATIENT
  Sex: Female

DRUGS (2)
  1. FLUDARABINE PHOSPHATE [Suspect]
     Indication: CHRONIC LYMPHOCYTIC LEUKAEMIA
     Dosage: 25 MG/M2 (40 MG) DAILY X 3 IV
     Route: 042
     Dates: start: 20060410, end: 20060413
  2. CYCLOPHOSPHAMIDE [Suspect]
     Dosage: 250 MG/M2 (400 MG) DAILY X 3 IV
     Route: 042
     Dates: start: 20060410, end: 20060413

REACTIONS (8)
  - ANAEMIA [None]
  - FEBRILE NEUTROPENIA [None]
  - MUCOSAL INFLAMMATION [None]
  - NAUSEA [None]
  - PLEURAL EFFUSION [None]
  - PNEUMONIA [None]
  - STOMATITIS [None]
  - VOMITING [None]
